FAERS Safety Report 14505629 (Version 1)
Quarter: 2018Q1

REPORT INFORMATION
  Report Type: Spontaneous
  Country: US (occurrence: US)
  Receive Date: 20180207
  Receipt Date: 20180207
  Transmission Date: 20180509
  Serious: Yes (Other)
  Sender: FDA-Public Use
  Company Number: None

PATIENT
  Age: 58 Year
  Sex: Male

DRUGS (2)
  1. LAMIVUDINE PLUS RALTEGRAVIR [Suspect]
     Active Substance: LAMIVUDINE\RALTEGRAVIR POTASSIUM
  2. ABACAVIR. [Suspect]
     Active Substance: ABACAVIR

REACTIONS (1)
  - Clostridium difficile colitis [None]
